FAERS Safety Report 14334856 (Version 1)
Quarter: 2017Q4

REPORT INFORMATION
  Report Type: Report from Study
  Country: US (occurrence: US)
  Receive Date: 20171229
  Receipt Date: 20171229
  Transmission Date: 20180321
  Serious: Yes (Hospitalization)
  Sender: FDA-Public Use
  Company Number: US-EXELIXIS-CABO-17011792

PATIENT
  Age: 62 Year
  Sex: Female

DRUGS (16)
  1. MULTIVITAMIN [Concomitant]
     Active Substance: VITAMINS
  2. BISACODYL. [Concomitant]
     Active Substance: BISACODYL
  3. SENNA [Concomitant]
     Active Substance: SENNA LEAF\SENNOSIDES\SENNOSIDES A AND B
  4. METHOCARBAMOL. [Concomitant]
     Active Substance: METHOCARBAMOL
  5. AMBIEN [Concomitant]
     Active Substance: ZOLPIDEM TARTRATE
  6. OLANZAPINE. [Concomitant]
     Active Substance: OLANZAPINE
  7. CABOMETYX [Suspect]
     Active Substance: CABOZANTINIB S-MALATE
     Indication: RENAL CANCER
     Dosage: 40 MG, QD
     Route: 048
     Dates: start: 20171006, end: 2017
  8. METHADONE [Concomitant]
     Active Substance: METHADONE HYDROCHLORIDE
  9. APIXABAN [Concomitant]
     Active Substance: APIXABAN
  10. OXYCODONE [Concomitant]
     Active Substance: OXYCODONE
  11. DOCUSATE [Concomitant]
     Active Substance: DOCUSATE
  12. FAMOTIDINE. [Concomitant]
     Active Substance: FAMOTIDINE
  13. DULOXETINE. [Concomitant]
     Active Substance: DULOXETINE
  14. ONDANSETRON [Concomitant]
     Active Substance: ONDANSETRON
  15. POLYETHYLENE GLYCOL 3350. [Concomitant]
     Active Substance: POLYETHYLENE GLYCOL 3350
  16. GABAPENTIN. [Concomitant]
     Active Substance: GABAPENTIN

REACTIONS (1)
  - Postoperative wound infection [Unknown]

NARRATIVE: CASE EVENT DATE: 201712
